APPROVED DRUG PRODUCT: PRELUDIN
Active Ingredient: PHENMETRAZINE HYDROCHLORIDE
Strength: 25MG
Dosage Form/Route: TABLET;ORAL
Application: N010460 | Product #005
Applicant: BOEHRINGER INGELHEIM PHARMACEUTICALS INC
Approved: Approved Prior to Jan 1, 1982 | RLD: No | RS: No | Type: DISCN